FAERS Safety Report 24451266 (Version 1)
Quarter: 2024Q4

REPORT INFORMATION
  Report Type: Spontaneous
  Country: US (occurrence: US)
  Receive Date: 20241017
  Receipt Date: 20241017
  Transmission Date: 20250115
  Serious: No
  Sender: LEXICON PHARMACEUTICALS
  Company Number: US-LEX-000487

PATIENT
  Age: 86 Year
  Sex: Female

DRUGS (7)
  1. INPEFA [Suspect]
     Active Substance: SOTAGLIFLOZIN
     Indication: Product used for unknown indication
     Route: 048
  2. METOPROLOL SUCCINATE [Concomitant]
     Active Substance: METOPROLOL SUCCINATE
  3. POTASSIUM CHLORIDE [Concomitant]
     Active Substance: POTASSIUM CHLORIDE
  4. MIDODRINE [Concomitant]
     Active Substance: MIDODRINE
  5. FERROUS SULFATE [Concomitant]
     Active Substance: FERROUS SULFATE
  6. VITAMIN C [Concomitant]
     Active Substance: ASCORBIC ACID
  7. TORSEMIDE [Concomitant]
     Active Substance: TORSEMIDE

REACTIONS (1)
  - Rash [Unknown]
